FAERS Safety Report 25676782 (Version 1)
Quarter: 2025Q3

REPORT INFORMATION
  Report Type: Spontaneous
  Country: US (occurrence: None)
  Receive Date: 20250812
  Receipt Date: 20250812
  Transmission Date: 20251021
  Serious: Yes (Other)
  Sender: FDA-CTU
  Company Number: None

PATIENT
  Age: 28 Year
  Sex: Female
  Weight: 69.1 kg

DRUGS (2)
  1. TENECTEPLASE [Suspect]
     Active Substance: TENECTEPLASE
     Indication: Cerebrovascular accident
     Dates: start: 20250513
  2. TENECTEPLASE [Concomitant]
     Active Substance: TENECTEPLASE
     Dates: start: 20250513, end: 20250513

REACTIONS (3)
  - Cerebral haematoma [None]
  - Thalamic infarction [None]
  - Blood pressure systolic decreased [None]

NARRATIVE: CASE EVENT DATE: 20250513
